FAERS Safety Report 11835278 (Version 1)
Quarter: 2015Q4

REPORT INFORMATION
  Report Type: Spontaneous
  Country: AR (occurrence: AR)
  Receive Date: 20151215
  Receipt Date: 20151215
  Transmission Date: 20160305
  Serious: Yes (Other)
  Sender: FDA-Public Use
  Company Number: AR-BEH-2015056323

PATIENT

DRUGS (3)
  1. PLASMAPHERESIS [Suspect]
     Active Substance: UNSPECIFIED INGREDIENT
     Indication: PROPHYLAXIS AGAINST TRANSPLANT REJECTION
  2. RITUXIMAB [Suspect]
     Active Substance: RITUXIMAB
     Indication: PROPHYLAXIS AGAINST TRANSPLANT REJECTION
  3. IVIG [Suspect]
     Active Substance: HUMAN IMMUNOGLOBULIN G
     Indication: PROPHYLAXIS AGAINST TRANSPLANT REJECTION

REACTIONS (2)
  - Complications of transplanted pancreas [Unknown]
  - Drug ineffective for unapproved indication [Unknown]
